FAERS Safety Report 21050314 (Version 2)
Quarter: 2022Q3

REPORT INFORMATION
  Report Type: Spontaneous
  Country: AR (occurrence: AR)
  Receive Date: 20220707
  Receipt Date: 20220818
  Transmission Date: 20221027
  Serious: Yes (Death, Life-Threatening, Hospitalization, Other)
  Sender: FDA-Public Use
  Company Number: AR-AUROBINDO-AUR-APL-2022-024762

PATIENT
  Age: 53 Year
  Sex: Female

DRUGS (2)
  1. BELEODAQ [Suspect]
     Active Substance: BELINOSTAT
     Indication: T-cell lymphoma
     Dosage: 1000 MG/M2, DAY
     Route: 042
     Dates: start: 20220404, end: 20220621
  2. BELEODAQ [Suspect]
     Active Substance: BELINOSTAT
     Dosage: 1000 MG/M2, DAY
     Route: 042
     Dates: start: 20220613

REACTIONS (3)
  - Death [Fatal]
  - Pyrexia [Recovered/Resolved]
  - Culture positive [Unknown]
